FAERS Safety Report 8403537-3 (Version None)
Quarter: 2012Q2

REPORT INFORMATION
  Report Type: 
  Country: None (occurrence: None)
  Receive Date: 20120601
  Receipt Date: 20120601
  Transmission Date: 20120825
  Serious: Yes (Other)
  Sender: FDA-Public Use
  Company Number: US-BAYER-RDEA119103100027

PATIENT
  Age: 65 Year
  Sex: Male
  Weight: 76.364 kg

DRUGS (4)
  1. MEK INHIBITOR (DIHYDROXYPROP-DIFLU-METHOXYPHEN-CYCLOPROPA-SULFAMI) [Suspect]
     Indication: OESOPHAGEAL CARCINOMA
     Route: 048
     Dates: start: 20091014, end: 20100113
  2. SORAFENIB (RAF KINASE INHIBITOR) [Suspect]
     Indication: OESOPHAGEAL CARCINOMA
     Route: 048
     Dates: start: 20091014, end: 20100113
  3. FLUOROURACIL [Concomitant]
     Dates: end: 20090101
  4. TOPROL-XL [Concomitant]
     Indication: HYPERTENSION
     Route: 048
     Dates: start: 20090329

REACTIONS (1)
  - LEFT VENTRICULAR DYSFUNCTION [None]
